FAERS Safety Report 16218836 (Version 1)
Quarter: 2019Q2

REPORT INFORMATION
  Report Type: Spontaneous
  Country: US (occurrence: US)
  Receive Date: 20190419
  Receipt Date: 20190419
  Transmission Date: 20190711
  Serious: No
  Sender: FDA-Public Use
  Company Number: US-UPSHER-SMITH LABORATORIES, LLC-2018USL00145

PATIENT
  Age: 51 Year
  Sex: Female
  Weight: 108.84 kg

DRUGS (2)
  1. QUDEXY XR [Suspect]
     Active Substance: TOPIRAMATE
     Dosage: 150 MG, 1X/DAY (AT NIGHT)
     Route: 048
  2. QUDEXY XR [Suspect]
     Active Substance: TOPIRAMATE
     Indication: MIGRAINE PROPHYLAXIS
     Dosage: 150 MG, 1X/DAY (AT NIGHT)
     Route: 048

REACTIONS (9)
  - Irritability [Recovered/Resolved]
  - Product dose omission [Recovered/Resolved]
  - Clumsiness [Recovered/Resolved]
  - Tenderness [Recovering/Resolving]
  - Bone contusion [Recovering/Resolving]
  - Mood altered [Recovered/Resolved]
  - Coordination abnormal [Recovered/Resolved]
  - Fall [Recovered/Resolved]
  - Contusion [Recovering/Resolving]

NARRATIVE: CASE EVENT DATE: 20180324
